FAERS Safety Report 24744216 (Version 1)
Quarter: 2024Q4

REPORT INFORMATION
  Report Type: Spontaneous
  Country: US (occurrence: None)
  Receive Date: 20241216
  Receipt Date: 20241216
  Transmission Date: 20250114
  Serious: No
  Sender: Public
  Company Number: None

PATIENT
  Age: 61 Year
  Sex: Male

DRUGS (1)
  1. SULFAMETHOXAZOLE AND TRIMETHOPRIM [Suspect]
     Active Substance: SULFAMETHOXAZOLE\TRIMETHOPRIM
     Indication: Skin infection
     Dates: end: 20240902

REACTIONS (7)
  - Diarrhoea [None]
  - Dizziness [None]
  - Pyrexia [None]
  - Headache [None]
  - Rash [None]
  - Acute kidney injury [None]
  - Vomiting [None]

NARRATIVE: CASE EVENT DATE: 20240902
